FAERS Safety Report 22865316 (Version 3)
Quarter: 2025Q4

REPORT INFORMATION
  Report Type: Spontaneous
  Country: US (occurrence: US)
  Receive Date: 20230825
  Receipt Date: 20251022
  Transmission Date: 20260118
  Serious: No
  Sender: ELI LILLY AND COMPANY
  Company Number: US-ELI_LILLY_AND_COMPANY-US202308015252

PATIENT
  Age: 78 Year
  Sex: Female

DRUGS (1)
  1. VERZENIO [Suspect]
     Active Substance: ABEMACICLIB
     Indication: Breast cancer female
     Dosage: 50 MG, BID
     Route: 048
     Dates: start: 20210207

REACTIONS (3)
  - Oedema peripheral [Unknown]
  - Cataract [Unknown]
  - Poor quality sleep [Unknown]
